FAERS Safety Report 10874496 (Version 3)
Quarter: 2015Q2

REPORT INFORMATION
  Report Type: Report from Study
  Country: JP (occurrence: JP)
  Receive Date: 20150227
  Receipt Date: 20150403
  Transmission Date: 20150821
  Serious: Yes (Hospitalization, Other)
  Sender: FDA-Public Use
  Company Number: JP-PFIZER INC-2015073856

PATIENT
  Age: 52 Year
  Sex: Male

DRUGS (23)
  1. NOVASTAN [Suspect]
     Active Substance: ARGATROBAN
     Dosage: UNK (0.52 UG/KG,1 MIN)
     Route: 041
     Dates: start: 20140612, end: 20140613
  2. DOBUPUM [Concomitant]
     Active Substance: DOBUTAMINE HYDROCHLORIDE
     Dosage: 216 MG, 1 IN 1 D
     Route: 042
     Dates: start: 20140609, end: 20140613
  3. MAINTATE [Concomitant]
     Active Substance: BISOPROLOL FUMARATE
     Dosage: 2.5 MG, 1 IN 1 D
     Route: 048
     Dates: start: 20140612
  4. MYSLEE [Concomitant]
     Active Substance: ZOLPIDEM TARTRATE
     Dosage: UNK, PRN
     Route: 048
  5. TANATRIL ^ALGOL^ [Concomitant]
     Dosage: 5 MG, 1 IN 1 D
     Route: 048
     Dates: start: 20140606
  6. MIDAZOLAM [Concomitant]
     Active Substance: MIDAZOLAM\MIDAZOLAM HYDROCHLORIDE
     Dosage: 432 MG, 1 IN 1 D
     Route: 042
     Dates: start: 20140609, end: 20140611
  7. HANP [Concomitant]
     Active Substance: CARPERITIDE
     Dosage: 0.9 MG, 1 IN 1 D
     Route: 042
     Dates: start: 20140610, end: 20140612
  8. GASTER [Concomitant]
     Active Substance: FAMOTIDINE
     Dosage: 40 MG, 1 IN 1 D
     Route: 042
     Dates: start: 20140611, end: 20140613
  9. RECOMODULIN [Concomitant]
     Active Substance: THROMBOMODULIN ALFA
     Dosage: UNK, 25.6 KU 1 IN 1 D
     Route: 042
     Dates: start: 20140611, end: 20140613
  10. GASTER [Concomitant]
     Active Substance: FAMOTIDINE
     Dosage: 20 MG, 1 IN 1 D
     Route: 048
     Dates: start: 20140614
  11. LIVALO [Concomitant]
     Active Substance: PITAVASTATIN CALCIUM
     Dosage: 2 MG, 1 IN 1 D
     Route: 048
  12. POTASSIUM CANRENOATE [Concomitant]
     Active Substance: CANRENOATE POTASSIUM
     Dosage: 200 MG, 1 IN 1 D
     Route: 042
     Dates: start: 20140610, end: 20140612
  13. NITOROL [Concomitant]
     Active Substance: ISOSORBIDE DINITRATE
     Dosage: 24 MG, 1 IN 1 D
     Route: 042
     Dates: start: 20140612, end: 20140613
  14. UNASYN S [Concomitant]
     Dosage: 12 G, 1 IN 1 D
     Route: 042
     Dates: start: 20140612, end: 20140616
  15. NOVASTAN [Suspect]
     Active Substance: ARGATROBAN
     Indication: HEPARIN-INDUCED THROMBOCYTOPENIA
     Dosage: UNK (0.7 UG/KG, 1 MIN)
     Route: 041
     Dates: start: 20140611, end: 20140611
  16. HEPARIN SODIUM. [Concomitant]
     Active Substance: HEPARIN SODIUM
     Indication: DEEP VEIN THROMBOSIS
     Dosage: UNK
     Route: 051
     Dates: start: 20140606
  17. FENTANYL. [Concomitant]
     Active Substance: FENTANYL
     Dosage: 0.9 MG, 1 IN 1 D
     Route: 042
     Dates: start: 20140610, end: 20140612
  18. ALDACTONE [Concomitant]
     Active Substance: SPIRONOLACTONE
     Dosage: 25 MG, 1 IN 1 D
     Route: 048
     Dates: start: 20140613
  19. NOVASTAN [Suspect]
     Active Substance: ARGATROBAN
     Dosage: UNK (0.35 UG/KG,1 MIN)
     Route: 041
     Dates: start: 20140613, end: 20140630
  20. ORADOL [Concomitant]
     Dosage: UNK, PRN
     Route: 049
  21. MILRILA [Concomitant]
     Active Substance: MILRINONE
     Dosage: 18 MG, 1 IN 1 D
     Route: 042
     Dates: start: 20140609, end: 20140617
  22. WARFARIN [Concomitant]
     Active Substance: WARFARIN
     Dosage: 3 MG, 1 IN 1 D
     Route: 048
     Dates: start: 20140626
  23. NOVASTAN [Suspect]
     Active Substance: ARGATROBAN
     Dosage: UNK (0.7 UG/KG,1 MIN)
     Route: 041
     Dates: start: 20140612, end: 20140612

REACTIONS (2)
  - Renal infarct [Recovering/Resolving]
  - Splenic infarction [Recovering/Resolving]

NARRATIVE: CASE EVENT DATE: 20140613
